FAERS Safety Report 9011330 (Version 1)
Quarter: 2013Q1

REPORT INFORMATION
  Report Type: Report from Study
  Country: CA (occurrence: CA)
  Receive Date: 20130108
  Receipt Date: 20130108
  Transmission Date: 20140127
  Serious: Yes (Other)
  Sender: FDA-Public Use
  Company Number: CA-JNJFOC-20130100505

PATIENT
  Age: 57 Year
  Sex: Female
  Weight: 57 kg

DRUGS (9)
  1. REMICADE [Suspect]
     Indication: CROHN^S DISEASE
     Route: 042
     Dates: start: 20120601
  2. REMICADE [Suspect]
     Indication: CROHN^S DISEASE
     Route: 042
     Dates: start: 20121011
  3. LOSEC [Concomitant]
     Route: 065
  4. DOMPERIDONE [Concomitant]
     Route: 065
  5. PREDNISONE [Concomitant]
     Route: 065
  6. COUMADIN [Concomitant]
     Route: 065
  7. VITAMIN D [Concomitant]
     Route: 065
  8. IRON [Concomitant]
     Route: 065
  9. ATIVAN [Concomitant]
     Route: 065

REACTIONS (3)
  - Blood pressure increased [Recovering/Resolving]
  - Anxiety [Unknown]
  - Infusion related reaction [Recovering/Resolving]
